FAERS Safety Report 5108813-8 (Version None)
Quarter: 2006Q3

REPORT INFORMATION
  Report Type: 
  Country: None (occurrence: None)
  Receive Date: 20060915
  Receipt Date: 20060915
  Transmission Date: 20061208
  Serious: Yes (Hospitalization)
  Sender: FDA-Public Use
  Company Number: None

PATIENT
  Age: 66 Year
  Sex: Female
  Weight: 70.4 kg

DRUGS (6)
  1. RAD001 (EVEROLIMUS) [Suspect]
     Indication: BREAST CANCER METASTATIC
     Dosage: 5 MG
     Dates: start: 20060905
  2. TARCEVA [Suspect]
     Indication: BREAST CANCER METASTATIC
     Dosage: 100 MG
     Dates: start: 20060905
  3. SENOKOT [Concomitant]
  4. TUMS [Concomitant]
  5. OXYCOD/APAP [Concomitant]
  6. OXYCODONE HCL [Concomitant]

REACTIONS (3)
  - DYSPNOEA [None]
  - FATIGUE [None]
  - OEDEMA PERIPHERAL [None]
